FAERS Safety Report 6898705-6 (Version None)
Quarter: 2010Q3

REPORT INFORMATION
  Report Type: 
  Country: None (occurrence: None)
  Receive Date: 20100802
  Receipt Date: 20071113
  Transmission Date: 20110219
  Serious: Yes (Hospitalization, Other)
  Sender: FDA-Public Use
  Company Number: US-PFIZER INC-2007096072

PATIENT

DRUGS (1)
  1. LYRICA [Suspect]

REACTIONS (2)
  - CONFUSIONAL STATE [None]
  - DIZZINESS [None]
